FAERS Safety Report 6964053-9 (Version None)
Quarter: 2010Q3

REPORT INFORMATION
  Report Type: 
  Country: None (occurrence: None)
  Receive Date: 20100902
  Receipt Date: 20100902
  Transmission Date: 20110219
  Serious: No
  Sender: FDA-Public Use
  Company Number: None

PATIENT
  Age: 12 Year
  Sex: Female
  Weight: 32 kg

DRUGS (1)
  1. GAMMAGARD LIQUID [Suspect]
     Dosage: 35 GRAMS EVERY 3 WEEKS IV
     Route: 042
     Dates: start: 20100601, end: 20100827

REACTIONS (2)
  - NAUSEA [None]
  - VOMITING [None]
